FAERS Safety Report 10522640 (Version 7)
Quarter: 2015Q1

REPORT INFORMATION
  Report Type: Spontaneous
  Country: US (occurrence: US)
  Receive Date: 20141016
  Receipt Date: 20150206
  Transmission Date: 20150720
  Serious: Yes (Life-Threatening, Hospitalization, Disabling, Other)
  Sender: FDA-Public Use
  Company Number: US-GILEAD-2014-0118335

PATIENT
  Age: 58 Year
  Sex: Male
  Weight: 78.91 kg

DRUGS (19)
  1. SOVALDI [Suspect]
     Active Substance: SOFOSBUVIR
     Indication: PRODUCT USED FOR UNKNOWN INDICATION
     Dosage: UNK
     Route: 065
     Dates: start: 20140801, end: 20141006
  2. CLONIDINE. [Concomitant]
     Active Substance: CLONIDINE
  3. COUMARIN [Concomitant]
     Active Substance: COUMARIN
  4. ALBUTEROL SULFATE. [Concomitant]
     Active Substance: ALBUTEROL SULFATE
  5. ELIQUIS [Concomitant]
     Active Substance: APIXABAN
  6. TRUVADA [Suspect]
     Active Substance: EMTRICITABINE\TENOFOVIR DISOPROXIL FUMARATE
     Indication: PRODUCT USED FOR UNKNOWN INDICATION
     Dosage: 1 DF, QD
     Route: 048
     Dates: start: 20130520, end: 20141006
  7. OLYSIO [Suspect]
     Active Substance: SIMEPREVIR
     Indication: PRODUCT USED FOR UNKNOWN INDICATION
     Dosage: UNK
     Route: 065
     Dates: start: 20140801, end: 20141006
  8. NICOTINE. [Concomitant]
     Active Substance: NICOTINE
  9. ENDOCET [Concomitant]
     Active Substance: ACETAMINOPHEN\OXYCODONE HYDROCHLORIDE
  10. K-DUR [Concomitant]
     Active Substance: POTASSIUM CHLORIDE
  11. FLUZONE QUADRIVALENT [Concomitant]
     Active Substance: INFLUENZA A VIRUS A/CALIFORNIA/7/2009 X-179A (H1N1) ANTIGEN (FORMALDEHYDE INACTIVATED)\INFLUENZA A VIRUS A/TEXAS/50/2012 X-223A (H3N2) ANTIGEN (FORMALDEHYDE INACTIVATED)\INFLUENZA B VIRUS B/BRISBANE/60/2008 ANTIGEN (FORMALDEHYDE INACTIVATED)\INFLUENZA B VIRUS B/MASSACHUSETTS/2/2012 ANTIGEN (FORMALDE
     Dosage: UNK, ONCE
     Route: 030
     Dates: start: 20140916, end: 20140916
  12. GABAPENTIN. [Concomitant]
     Active Substance: GABAPENTIN
     Indication: NEUROPATHY PERIPHERAL
  13. METOPROLOL [Concomitant]
     Active Substance: METOPROLOL
  14. SMZ-TMP [Concomitant]
     Active Substance: SULFAMETHOXAZOLE\TRIMETHOPRIM
  15. HYDROCODONE BITARTRATE AND ACETAMINOPHEN [Concomitant]
     Active Substance: ACETAMINOPHEN\HYDROCODONE BITARTRATE
  16. ISENTRESS [Concomitant]
     Active Substance: RALTEGRAVIR POTASSIUM
  17. AMLODIPINE [Concomitant]
     Active Substance: AMLODIPINE BESYLATE
  18. VICODIN [Concomitant]
     Active Substance: ACETAMINOPHEN\HYDROCODONE BITARTRATE
  19. DILTIAZEM [Concomitant]
     Active Substance: DILTIAZEM

REACTIONS (11)
  - Anaemia [Unknown]
  - Hyperkalaemia [Recovered/Resolved with Sequelae]
  - Renal tubular necrosis [Unknown]
  - Acute kidney injury [Not Recovered/Not Resolved]
  - Metabolic encephalopathy [Recovered/Resolved]
  - Systemic inflammatory response syndrome [Unknown]
  - Coagulopathy [Unknown]
  - Product quality issue [Unknown]
  - Electrolyte imbalance [Unknown]
  - Pneumonia aspiration [Unknown]
  - Asthenia [Unknown]
